FAERS Safety Report 24810613 (Version 1)
Quarter: 2025Q1

REPORT INFORMATION
  Report Type: Spontaneous
  Country: US (occurrence: None)
  Receive Date: 20250104
  Receipt Date: 20250104
  Transmission Date: 20250409
  Serious: Yes (Other)
  Sender: FDA-CTU
  Company Number: None

PATIENT
  Age: 60 Year
  Sex: Female
  Weight: 54 kg

DRUGS (6)
  1. OCALIVA [Suspect]
     Active Substance: OBETICHOLIC ACID
     Indication: Primary biliary cholangitis
     Dosage: 1 TABLET DAILY ORAL
     Route: 048
     Dates: start: 20240323, end: 20240820
  2. URSODIOL [Suspect]
     Active Substance: URSODIOL
  3. Juice Plus (food based capsules) Vegetables Berries, Fruits / Powdered [Concomitant]
  4. VEGETABLES [Concomitant]
  5. BERRIES [Concomitant]
  6. FRUIT [Concomitant]
     Active Substance: FRUIT

REACTIONS (7)
  - Autoimmune disorder [None]
  - Liver injury [None]
  - Feeling abnormal [None]
  - Tremor [None]
  - Blood alkaline phosphatase increased [None]
  - Aspartate aminotransferase increased [None]
  - Alanine aminotransferase increased [None]

NARRATIVE: CASE EVENT DATE: 20240819
